FAERS Safety Report 10185852 (Version 2)
Quarter: 2014Q2

REPORT INFORMATION
  Report Type: Report from Study
  Country: CA (occurrence: CA)
  Receive Date: 20140521
  Receipt Date: 20140530
  Transmission Date: 20141212
  Serious: Yes (Life-Threatening, Hospitalization, Other)
  Sender: FDA-Public Use
  Company Number: CA-ABBVIE-14P-028-1239015-00

PATIENT
  Age: 62 Year
  Sex: Male
  Weight: 77.18 kg

DRUGS (31)
  1. HUMIRA [Suspect]
     Indication: CROHN^S DISEASE
     Route: 058
     Dates: start: 20090922
  2. HUMIRA [Suspect]
     Dosage: LATEST DOSE: 11-MAY-2014(SUNDAY NIGHTS)
     Route: 058
  3. CHOLESTYRAMINE [Concomitant]
     Indication: CROHN^S DISEASE
     Dosage: 4-8 GRAMS (1/4 POUCH WITH MEALS)
  4. LOMOTIL [Concomitant]
     Indication: CROHN^S DISEASE
     Dosage: 2.5 MG 1-2 TABS UP TO 4X DAILY PRN
  5. MORPHINE SULFATE SR [Concomitant]
     Indication: PAIN
  6. STATEX (MORPHINE) [Concomitant]
     Indication: PAIN
     Dosage: 1-2 AS NEEDED UP TO 4
  7. LORAZEPAM [Concomitant]
     Indication: DEPRESSION
     Dosage: 2 MAX
  8. LORAZEPAM [Concomitant]
     Indication: ANXIETY
  9. SERTRALINE [Concomitant]
     Indication: DEPRESSION
     Dosage: AT NIGHT
  10. SERTRALINE [Concomitant]
     Indication: ANXIETY
  11. CLONIDINE [Concomitant]
     Indication: HYPERTENSION
  12. CARDIZEM [Concomitant]
     Indication: HYPERTENSION
     Dosage: ONE IN AM AND 1 AT BEDTIME
  13. METOPROLOL [Concomitant]
     Indication: HYPERTENSION
     Dosage: 1/2 TABLET TWICE DAILY WITH FOOD
  14. ASPIRIN [Concomitant]
     Indication: HYPERTROPHIC CARDIOMYOPATHY
  15. ASPIRIN [Concomitant]
     Indication: AORTIC VALVE DISEASE
  16. ASPIRIN [Concomitant]
     Indication: BLOOD TEST
  17. ASPIRIN [Concomitant]
     Indication: CARDIAC DISORDER
  18. FUROSEMIDE [Concomitant]
     Indication: CARDIAC DISORDER
     Dosage: 2 DAILY
  19. FUROSEMIDE [Concomitant]
     Indication: LOCAL SWELLING
  20. SPIRONOLACTON [Concomitant]
     Indication: CARDIAC DISORDER
  21. SPIRONOLACTON [Concomitant]
     Indication: LOCAL SWELLING
  22. ZOMIG [Concomitant]
     Indication: MIGRAINE
     Dosage: 2.5 MG AS DIRECTED
  23. IMOVANE [Concomitant]
     Indication: INSOMNIA
     Dosage: AS DIRECTED AT NIGHT
  24. SANDOZ-PANTOPRAZOL [Concomitant]
     Indication: GASTROOESOPHAGEAL REFLUX DISEASE
     Dosage: 1 TAB TWICE DAILY AND I TAB AT BEDTIME AS NEEDED
  25. VITAMIN D [Concomitant]
     Indication: OSTEOPOROSIS
  26. FLONASE [Concomitant]
     Indication: PRODUCT USED FOR UNKNOWN INDICATION
     Dosage: 2 PRAY ACH NOSTRIL TWICE DAILY AS REQUIRED
  27. DECONGESTANT SPRAY (OTC) [Concomitant]
     Indication: PRODUCT USED FOR UNKNOWN INDICATION
     Dosage: 2 SPRATS TO BACK UP FLONASE AS REQUIRED
  28. TIMOPTIC-XE [Concomitant]
     Indication: GLAUCOMA
     Dosage: 1 DROP EACH EYE DAILY
  29. BETADEM CREAM [Concomitant]
     Indication: PRODUCT USED FOR UNKNOWN INDICATION
  30. MAGNESIUM [Concomitant]
     Indication: PRODUCT USED FOR UNKNOWN INDICATION
     Dosage: 50 MG DAILY
  31. CALCIUM [Concomitant]
     Indication: PRODUCT USED FOR UNKNOWN INDICATION
     Dosage: 500 MG IN AM AND PM

REACTIONS (5)
  - Mechanical ventilation [Recovered/Resolved]
  - Crohn^s disease [Unknown]
  - Post procedural infection [Recovered/Resolved]
  - Drug ineffective [Unknown]
  - Sepsis [Recovered/Resolved]
